FAERS Safety Report 10560874 (Version 1)
Quarter: 2014Q4

REPORT INFORMATION
  Report Type: Spontaneous
  Country: IT (occurrence: IT)
  Receive Date: 20141103
  Receipt Date: 20141103
  Transmission Date: 20150529
  Serious: Yes (Hospitalization)
  Sender: FDA-Public Use
  Company Number: PHHY2014IT142102

PATIENT
  Sex: Male

DRUGS (4)
  1. ADRENALINE [Suspect]
     Active Substance: EPINEPHRINE
     Dosage: 100 UG, UNK
     Route: 042
  2. METOPROLOL [Suspect]
     Active Substance: METOPROLOL
     Indication: ATRIAL FIBRILLATION
     Dosage: 7.5 MG, ONCE/SINGLE
     Route: 042
     Dates: start: 20140503, end: 20140503
  3. FLECAINIDE [Suspect]
     Active Substance: FLECAINIDE
     Indication: ATRIAL FIBRILLATION
     Dosage: 150 MG, QD
     Route: 042
     Dates: start: 20140503, end: 20140503
  4. CLEXANE T [Concomitant]
     Active Substance: ENOXAPARIN SODIUM
     Indication: PROPHYLAXIS
     Dosage: 8000 U, UNK
     Route: 058
     Dates: start: 20140503, end: 20140503

REACTIONS (2)
  - Sinus bradycardia [Recovered/Resolved]
  - Sinus arrest [Recovered/Resolved]

NARRATIVE: CASE EVENT DATE: 20140503
